FAERS Safety Report 7247467-1 (Version None)
Quarter: 2011Q1

REPORT INFORMATION
  Report Type: 
  Country: None (occurrence: None)
  Receive Date: 20110127
  Receipt Date: 20110117
  Transmission Date: 20110831
  Serious: Yes (Hospitalization)
  Sender: FDA-Public Use
  Company Number: US-ROCHE-538981

PATIENT
  Sex: Female
  Weight: 77 kg

DRUGS (3)
  1. BEVACIZUMAB [Suspect]
     Indication: OVARIAN CANCER
     Dosage: 1230 MG, Q3W
     Route: 042
     Dates: start: 20071019
  2. GEMCITABINE [Suspect]
     Indication: OVARIAN CANCER
     Dosage: 1960 MG, DAY1+AMP;8/Q3W
     Route: 042
     Dates: start: 20071019
  3. CARBOPLATIN [Suspect]
     Indication: OVARIAN CANCER
     Dosage: 430 MG, Q3W
     Route: 042
     Dates: start: 20071019

REACTIONS (1)
  - BILIARY COLIC [None]
